FAERS Safety Report 9982821 (Version 1)
Quarter: 2014Q1

REPORT INFORMATION
  Report Type: Report from Study
  Country: US (occurrence: US)
  Receive Date: 20140307
  Receipt Date: 20140307
  Transmission Date: 20141002
  Serious: No
  Sender: FDA-Public Use
  Company Number: US-ABBVIE-13P-163-1176984-00

PATIENT
  Age: 73 Year
  Sex: Male

DRUGS (8)
  1. HUMIRA [Suspect]
     Indication: CROHN^S DISEASE
     Dates: start: 20131123
  2. DIOVAN [Concomitant]
     Indication: HYPERTENSION
     Dosage: IN MORNING
  3. LIPITOR [Concomitant]
     Indication: BLOOD CHOLESTEROL INCREASED
     Dosage: IN MORNING
  4. POTASSIUM [Concomitant]
     Indication: HYPOKALAEMIA
  5. IRON [Concomitant]
     Indication: BLOOD IRON DECREASED
  6. MULTIVITAMIN [Concomitant]
     Indication: PRODUCT USED FOR UNKNOWN INDICATION
  7. FINASTERIDE [Concomitant]
     Indication: PROSTATIC DISORDER
  8. PREDNISONE [Concomitant]
     Indication: PRODUCT USED FOR UNKNOWN INDICATION
     Dosage: TAPER (STARTED AT 40 MG 7 WEEKS AGO) TAKING 10 MG DAILY AND TAPERING DOWN 5 MG EVERY WEEK

REACTIONS (2)
  - Injection site erythema [Recovering/Resolving]
  - Injection site erythema [Recovering/Resolving]
